FAERS Safety Report 21568112 (Version 2)
Quarter: 2022Q4

REPORT INFORMATION
  Report Type: Spontaneous
  Country: JP (occurrence: JP)
  Receive Date: 20221108
  Receipt Date: 20221227
  Transmission Date: 20230113
  Serious: Yes (Hospitalization)
  Sender: FDA-Public Use
  Company Number: JP-TEVA-2022-JP-2824331

PATIENT
  Age: 80 Year
  Sex: Male

DRUGS (6)
  1. PREDNISOLONE [Suspect]
     Active Substance: PREDNISOLONE
     Indication: Lung disorder
     Dosage: 20 MILLIGRAM DAILY;
     Route: 065
  2. RIFAMPIN [Suspect]
     Active Substance: RIFAMPIN
     Indication: Mycobacterium avium complex infection
     Route: 065
  3. MIRIPLATIN [Suspect]
     Active Substance: MIRIPLATIN
     Indication: Hepatocellular carcinoma
     Dosage: INTRA-ARTERIAL INFUSION OF ETHIODIZED-OIL 3.5ML/MIRIPLATIN 70MG SUSPENSION , ETHIODIZED OIL: 3.50 ML
     Route: 013
  4. ETHAMBUTOL [Concomitant]
     Active Substance: ETHAMBUTOL HYDROCHLORIDE
     Indication: Mycobacterium avium complex infection
     Route: 065
  5. CLARITHROMYCIN [Concomitant]
     Active Substance: CLARITHROMYCIN
     Indication: Mycobacterium avium complex infection
     Route: 065
  6. LIPIODOL [Suspect]
     Active Substance: ETHIODIZED OIL

REACTIONS (2)
  - Myxoedema [Recovered/Resolved]
  - Hypothyroidism [Recovered/Resolved]
